FAERS Safety Report 10032358 (Version 2)
Quarter: 2014Q2

REPORT INFORMATION
  Report Type: Spontaneous
  Country: GB (occurrence: None)
  Receive Date: 20140320
  Receipt Date: 20140617
  Transmission Date: 20141212
  Serious: Yes (Hospitalization)
  Sender: FDA-Public Use
  Company Number: FK201400862

PATIENT
  Age: 9 Year
  Sex: Male

DRUGS (4)
  1. METHOTREXATE (MANUFACTURER UNKNOWN) (METHOTREXATE) (METHOTREXATE) [Suspect]
     Indication: CROHN^S DISEASE
     Route: 048
     Dates: start: 20101220, end: 20140121
  2. AZATHIOPRINE (AZATHIOPRINE) (AZATHIOPRINE) [Suspect]
     Indication: CROHN^S DISEASE
     Route: 048
     Dates: start: 20070628, end: 20100524
  3. CALCICHEW D3 (LEKOVIT CA) [Concomitant]
  4. FOLIC ACID (FOLIC ACID) [Concomitant]

REACTIONS (5)
  - Acute myeloid leukaemia [None]
  - Chloroma [None]
  - Platelet count decreased [None]
  - Thrombosis [None]
  - Vitamin D deficiency [None]
